FAERS Safety Report 5327969-5 (Version None)
Quarter: 2007Q2

REPORT INFORMATION
  Report Type: 
  Country: None (occurrence: None)
  Receive Date: 20070517
  Receipt Date: 20070507
  Transmission Date: 20071010
  Serious: Yes (Other)
  Sender: FDA-Public Use
  Company Number: US-PFIZER INC-2007034873

PATIENT
  Sex: Male
  Weight: 108.9 kg

DRUGS (4)
  1. LIPITOR [Suspect]
     Dates: start: 20030101, end: 20070401
  2. TRICOR [Concomitant]
  3. METFORMIN HCL [Concomitant]
  4. VALSARTAN [Concomitant]

REACTIONS (12)
  - CHEST INJURY [None]
  - CHEST PAIN [None]
  - COGNITIVE DISORDER [None]
  - DYSPHAGIA [None]
  - DYSPNOEA [None]
  - MUSCLE ATROPHY [None]
  - MUSCLE SPASMS [None]
  - MUSCULOSKELETAL CHEST PAIN [None]
  - MYALGIA [None]
  - NECK PAIN [None]
  - PAIN IN EXTREMITY [None]
  - TREMOR [None]
